FAERS Safety Report 23243216 (Version 3)
Quarter: 2024Q2

REPORT INFORMATION
  Report Type: Report from Study
  Country: US (occurrence: US)
  Receive Date: 20231130
  Receipt Date: 20240410
  Transmission Date: 20240716
  Serious: No
  Sender: FDA-Public Use
  Company Number: US-ALXN-A202309393

PATIENT
  Age: 76 Year
  Sex: Male

DRUGS (3)
  1. ULTOMIRIS [Suspect]
     Active Substance: RAVULIZUMAB-CWVZ
     Indication: Myasthenia gravis
     Dosage: UNK
     Route: 042
  2. ULTOMIRIS [Suspect]
     Active Substance: RAVULIZUMAB-CWVZ
     Dosage: UNK, SEVEN WEEKS
     Route: 042
  3. PROCAINE [Concomitant]
     Active Substance: PROCAINE
     Indication: Product used for unknown indication
     Dosage: UNK
     Route: 065

REACTIONS (11)
  - Dysstasia [Unknown]
  - Muscular weakness [Unknown]
  - Fatigue [Unknown]
  - Therapeutic response shortened [Unknown]
  - Anxiety [Unknown]
  - Asthenia [Unknown]
  - Mobility decreased [Unknown]
  - Dysphagia [Unknown]
  - Speech disorder [Unknown]
  - Musculoskeletal disorder [Unknown]
  - Erythema [Unknown]

NARRATIVE: CASE EVENT DATE: 20230718
